FAERS Safety Report 4486365-3 (Version None)
Quarter: 2004Q4

REPORT INFORMATION
  Report Type: 
  Country: None (occurrence: None)
  Receive Date: 20041004
  Receipt Date: 20041004
  Transmission Date: 20050328
  Serious: Yes (Hospitalization)
  Sender: FDA-Public Use
  Company Number: None

PATIENT
  Age: 58 Year
  Sex: Female
  Weight: 77.5651 kg

DRUGS (9)
  1. CYMBALTA [Suspect]
     Indication: ANXIETY
     Dosage: 60 MG ORALLY
     Route: 048
     Dates: start: 20040923
  2. CYMBALTA [Suspect]
     Indication: DEPRESSION
     Dosage: 60 MG ORALLY
     Route: 048
     Dates: start: 20040923
  3. INDERAL [Concomitant]
  4. ARTHROTEC [Concomitant]
  5. AMARYL [Concomitant]
  6. ACIPHEX [Concomitant]
  7. ADALAT [Concomitant]
  8. KLONOPIN [Concomitant]
  9. ALLEGRA [Concomitant]

REACTIONS (6)
  - ALANINE AMINOTRANSFERASE INCREASED [None]
  - ASPARTATE AMINOTRANSFERASE INCREASED [None]
  - ASTHENIA [None]
  - BLOOD BILIRUBIN INCREASED [None]
  - CHROMATURIA [None]
  - JAUNDICE [None]
